FAERS Safety Report 9727100 (Version 1)
Quarter: 2013Q4

REPORT INFORMATION
  Report Type: Spontaneous
  Country: US (occurrence: US)
  Receive Date: 20131203
  Receipt Date: 20131203
  Transmission Date: 20140711
  Serious: Yes (Hospitalization)
  Sender: FDA-Public Use
  Company Number: US-BAYER-2013-143690

PATIENT
  Age: 40 Year
  Sex: Female

DRUGS (2)
  1. YASMIN [Suspect]
  2. ALBUTEROL INHALER [Concomitant]
     Indication: ASTHMA

REACTIONS (1)
  - Cholecystitis acute [None]
